FAERS Safety Report 9149090 (Version 1)
Quarter: 2013Q1

REPORT INFORMATION
  Report Type: Spontaneous
  Country: US (occurrence: US)
  Receive Date: 20130308
  Receipt Date: 20130308
  Transmission Date: 20140127
  Serious: Yes (Hospitalization)
  Sender: FDA-Public Use
  Company Number: US-B.I. PHARMACEUTICALS,INC./RIDGEFIELD-2013-BI-05298BP

PATIENT
  Age: 89 Year
  Sex: Female

DRUGS (3)
  1. PRADAXA [Suspect]
     Indication: ATRIAL FIBRILLATION
     Dosage: 150 MG
     Route: 048
     Dates: start: 2012
  2. METOPOLOL TARTRATE [Concomitant]
     Indication: HEART RATE DECREASED
     Dosage: 50 MG
     Route: 048
     Dates: start: 201212, end: 20130223
  3. CARDIZEM EXTENDED-RELEASE [Concomitant]
     Indication: HEART RATE DECREASED
     Dosage: 240 MG
     Route: 048
     Dates: start: 201212, end: 20130223

REACTIONS (4)
  - Heart rate decreased [Recovered/Resolved]
  - Heart rate increased [Recovered/Resolved]
  - Heart rate increased [Not Recovered/Not Resolved]
  - Dizziness [Unknown]
